FAERS Safety Report 13035842 (Version 4)
Quarter: 2017Q2

REPORT INFORMATION
  Report Type: Spontaneous
  Country: US (occurrence: US)
  Receive Date: 20161216
  Receipt Date: 20170426
  Transmission Date: 20170830
  Serious: Yes (Disabling, Other)
  Sender: FDA-Public Use
  Company Number: US-PFIZER INC-2016580427

PATIENT
  Age: 51 Year
  Sex: Female
  Weight: 90 kg

DRUGS (1)
  1. EFFEXOR XR [Suspect]
     Active Substance: VENLAFAXINE HYDROCHLORIDE
     Indication: FIBROMYALGIA
     Dosage: 150 MG, 1X/DAY
     Route: 048
     Dates: start: 1997

REACTIONS (17)
  - Rotator cuff syndrome [Unknown]
  - Muscle spasms [Unknown]
  - Pain [Unknown]
  - Arthritis [Unknown]
  - Bladder prolapse [Unknown]
  - Thoracic outlet syndrome [Unknown]
  - Accident [Unknown]
  - Asthenia [Not Recovered/Not Resolved]
  - Limb injury [Unknown]
  - Product use in unapproved indication [Unknown]
  - Hypoaesthesia [Unknown]
  - Intervertebral disc protrusion [Unknown]
  - Malaise [Not Recovered/Not Resolved]
  - Neck injury [Unknown]
  - Cervix disorder [Unknown]
  - Cervical spinal stenosis [Unknown]
  - Depression [Unknown]

NARRATIVE: CASE EVENT DATE: 201604
